FAERS Safety Report 19158793 (Version 1)
Quarter: 2021Q2

REPORT INFORMATION
  Report Type: Spontaneous
  Country: TR (occurrence: TR)
  Receive Date: 20210420
  Receipt Date: 20210420
  Transmission Date: 20210717
  Serious: Yes (Other)
  Sender: FDA-Public Use
  Company Number: TR-TAKEDA-2021TUS024972

PATIENT
  Sex: Female
  Weight: 43 kg

DRUGS (4)
  1. METHOTREXATE. [Concomitant]
     Active Substance: METHOTREXATE
     Dosage: UNK
     Route: 048
  2. SALAZOPYRIN [Concomitant]
     Active Substance: SULFASALAZINE
     Dosage: UNK
     Route: 048
  3. PREDNOL [METHYLPREDNISOLONE] [Concomitant]
     Dosage: 16 MILLIGRAM
     Route: 048
  4. ENTYVIO [Suspect]
     Active Substance: VEDOLIZUMAB
     Indication: COLITIS ULCERATIVE
     Dosage: 300 MILLIGRAM
     Route: 042
     Dates: start: 20200619, end: 20201211

REACTIONS (2)
  - Arthritis [Not Recovered/Not Resolved]
  - Uveitis [Not Recovered/Not Resolved]
